FAERS Safety Report 9501658 (Version 2)
Quarter: 2013Q4

REPORT INFORMATION
  Report Type: Spontaneous
  Country: US (occurrence: US)
  Receive Date: 20130905
  Receipt Date: 20131008
  Transmission Date: 20140711
  Serious: Yes (Other)
  Sender: FDA-Public Use
  Company Number: US-ENDO PHARMACEUTICALS INC.-PERD20130007

PATIENT
  Age: 45 Year
  Sex: Male

DRUGS (1)
  1. PERCODAN [Suspect]
     Indication: NEPHROLITHIASIS
     Dosage: UNK
     Route: 048

REACTIONS (1)
  - Opiates positive [Unknown]
